FAERS Safety Report 6163872-9 (Version None)
Quarter: 2009Q2

REPORT INFORMATION
  Report Type: 
  Country: None (occurrence: None)
  Receive Date: 20090422
  Receipt Date: 20090415
  Transmission Date: 20091009
  Serious: Yes (Death, Hospitalization)
  Sender: FDA-Public Use
  Company Number: JP-BRISTOL-MYERS SQUIBB COMPANY-14592174

PATIENT
  Age: 68 Year
  Sex: Male

DRUGS (12)
  1. BRIPLATIN [Suspect]
     Indication: NON-SMALL CELL LUNG CANCER
     Route: 041
     Dates: start: 20001031, end: 20001031
  2. NAVELBINE [Suspect]
     Indication: NON-SMALL CELL LUNG CANCER
     Route: 042
     Dates: start: 20001031, end: 20001107
  3. MUCODYNE [Concomitant]
     Route: 048
     Dates: start: 20001011, end: 20001116
  4. EPADEL [Concomitant]
     Route: 048
     Dates: start: 20001011, end: 20001116
  5. NOLEPTAN [Concomitant]
     Route: 048
     Dates: start: 20001011, end: 20001108
  6. NITRODERM [Concomitant]
     Route: 061
     Dates: start: 20001011, end: 20001117
  7. CEFZON [Concomitant]
     Route: 048
     Dates: start: 20001017, end: 20001020
  8. ADONA [Concomitant]
     Route: 048
     Dates: start: 20001018, end: 20001116
  9. TRANSAMIN [Concomitant]
     Route: 048
     Dates: start: 20001030, end: 20001116
  10. MAGNESIUM OXIDE [Concomitant]
     Route: 048
     Dates: start: 20001101, end: 20001115
  11. MARZULENE-S [Concomitant]
     Route: 048
     Dates: start: 20001103, end: 20001116
  12. BISACODYL [Concomitant]
     Route: 054
     Dates: start: 20001101, end: 20001113

REACTIONS (22)
  - ACUTE RESPIRATORY FAILURE [None]
  - ANOREXIA [None]
  - BLOOD BILIRUBIN INCREASED [None]
  - BLOOD CREATININE INCREASED [None]
  - BLOOD HYPOSMOSIS [None]
  - BLOOD LACTATE DEHYDROGENASE INCREASED [None]
  - BLOOD UREA INCREASED [None]
  - C-REACTIVE PROTEIN INCREASED [None]
  - CONSTIPATION [None]
  - DIARRHOEA [None]
  - FEBRILE NEUTROPENIA [None]
  - GASTRITIS [None]
  - HAEMATURIA [None]
  - HYPOCHLORAEMIA [None]
  - HYPOKALAEMIA [None]
  - HYPOPROTEINAEMIA [None]
  - INAPPROPRIATE ANTIDIURETIC HORMONE SECRETION [None]
  - LEUKOPENIA [None]
  - PLATELET COUNT DECREASED [None]
  - PNEUMONIA [None]
  - PROTEINURIA [None]
  - SEPTIC SHOCK [None]
